FAERS Safety Report 4358113-9 (Version None)
Quarter: 2004Q2

REPORT INFORMATION
  Report Type: 
  Country: None (occurrence: None)
  Receive Date: 20040511
  Receipt Date: 20040430
  Transmission Date: 20050107
  Serious: Yes (Hospitalization)
  Sender: FDA-Public Use
  Company Number: FR-JNJFOC-20040404264

PATIENT
  Age: 93 Year
  Sex: Male

DRUGS (1)
  1. RISPERDAL [Suspect]
     Indication: ADVERSE EVENT
     Dosage: 6 MG, IN 1 DAY, ORAL
     Route: 048
     Dates: start: 20030402, end: 20030404

REACTIONS (6)
  - EXTRAPYRAMIDAL DISORDER [None]
  - HYPERKINESIA [None]
  - HYPERTHERMIA [None]
  - HYPERTONIA [None]
  - LUNG DISORDER [None]
  - SOMNOLENCE [None]
